FAERS Safety Report 25426933 (Version 1)
Quarter: 2025Q2

REPORT INFORMATION
  Report Type: Spontaneous
  Country: US (occurrence: US)
  Receive Date: 20250612
  Receipt Date: 20250612
  Transmission Date: 20250717
  Serious: No
  Sender: RIGEL PHARMACEUTICALS
  Company Number: US-RIGEL PHARMACEUTICALS, INC-20250500201

PATIENT
  Sex: Male

DRUGS (1)
  1. GAVRETO [Suspect]
     Active Substance: PRALSETINIB
     Indication: Thyroid cancer
     Dosage: 400 MG,QD
     Route: 048
     Dates: start: 20250326

REACTIONS (3)
  - Influenza like illness [Unknown]
  - Abdominal pain upper [Unknown]
  - Bone pain [Unknown]

NARRATIVE: CASE EVENT DATE: 20250101
